FAERS Safety Report 24392009 (Version 1)
Quarter: 2024Q4

REPORT INFORMATION
  Report Type: Spontaneous
  Country: US (occurrence: US)
  Receive Date: 20241003
  Receipt Date: 20241003
  Transmission Date: 20250115
  Serious: Yes (Other)
  Sender: HIKMA
  Company Number: US-MLMSERVICE-20240919-PI198596-00270-1

PATIENT
  Sex: Male

DRUGS (9)
  1. PREDNISONE [Suspect]
     Active Substance: PREDNISONE
     Indication: Chorioretinopathy
     Dosage: UNK
     Route: 048
  2. TRIAMCINOLONE [Suspect]
     Active Substance: TRIAMCINOLONE
     Indication: Chorioretinopathy
     Dosage: SUB-TENON TRIAMCINOLONE IN THE RIGHT EYE EIGHT YEARS PRIOR TO PRESENTATION AND SUB-TENON TRIAMCINOLO
     Route: 031
  3. ASPIRIN [Concomitant]
     Active Substance: ASPIRIN
     Indication: Ocular discomfort
     Dosage: UNK
     Route: 065
  4. ASPIRIN [Concomitant]
     Active Substance: ASPIRIN
     Indication: Visual impairment
  5. CYCLOPHOSPHAMIDE [Concomitant]
     Active Substance: CYCLOPHOSPHAMIDE
     Indication: Chorioretinopathy
     Dosage: UNK
     Route: 065
  6. METHOTREXATE [Concomitant]
     Active Substance: METHOTREXATE
     Indication: Chorioretinopathy
     Dosage: STARTED EIGHT YEARS PRIOR TO PRESENTATION AND 4 YEARS PRIOR TO PRESENTATION MAXIMIZED TO 25 MG WEEKL
     Route: 048
  7. MYCOPHENOLATE MOFETIL [Concomitant]
     Active Substance: MYCOPHENOLATE MOFETIL
     Indication: Chorioretinopathy
     Dosage: 1.5 GRAM, Q12H
     Route: 048
  8. ROFECOXIB [Concomitant]
     Active Substance: ROFECOXIB
     Indication: Ocular discomfort
     Dosage: UNK
     Route: 065
  9. ROFECOXIB [Concomitant]
     Active Substance: ROFECOXIB
     Indication: Visual impairment

REACTIONS (5)
  - Neoplasm progression [Recovering/Resolving]
  - Choroidal osteoma [Recovering/Resolving]
  - Visual acuity reduced [Recovering/Resolving]
  - Retinal degeneration [Recovering/Resolving]
  - Blindness unilateral [Recovering/Resolving]
